FAERS Safety Report 13760708 (Version 2)
Quarter: 2017Q3

REPORT INFORMATION
  Report Type: Spontaneous
  Country: IT (occurrence: IT)
  Receive Date: 20170717
  Receipt Date: 20170831
  Transmission Date: 20171127
  Serious: Yes (Death, Other)
  Sender: FDA-Public Use
  Company Number: IT-MYLANLABS-2017M1042073

PATIENT
  Age: 4 Year
  Sex: Female

DRUGS (6)
  1. CIDOFOVIR. [Suspect]
     Active Substance: CIDOFOVIR
     Indication: BK VIRUS INFECTION
  2. CIPROFLOXACIN. [Suspect]
     Active Substance: CIPROFLOXACIN
     Indication: SEPSIS
     Route: 065
  3. VORICONAZOLE. [Suspect]
     Active Substance: VORICONAZOLE
     Indication: ASPERGILLUS INFECTION
     Dosage: 18 MG/KG/DAY ON FIRST DAYS; FOLLOWED BY 16 MG/KG/DAY
     Route: 065
  4. DEFIBROTIDE [Suspect]
     Active Substance: DEFIBROTIDE (BOVINE)
     Indication: MICROANGIOPATHY
     Route: 065
  5. CIDOFOVIR. [Suspect]
     Active Substance: CIDOFOVIR
     Indication: VIRAL HAEMORRHAGIC CYSTITIS
     Route: 065
  6. VORICONAZOLE. [Suspect]
     Active Substance: VORICONAZOLE
     Dosage: 16 MG/KG/DAY
     Route: 065

REACTIONS (2)
  - Toxic epidermal necrolysis [Fatal]
  - Adenovirus infection [Fatal]
